FAERS Safety Report 10256769 (Version 3)
Quarter: 2015Q1

REPORT INFORMATION
  Report Type: Report from Study
  Country: TR (occurrence: TR)
  Receive Date: 20140624
  Receipt Date: 20150319
  Transmission Date: 20150720
  Serious: Yes (Hospitalization)
  Sender: FDA-Public Use
  Company Number: TR-ABBVIE-13P-161-1053534-00

PATIENT
  Age: 34 Year
  Sex: Female

DRUGS (1)
  1. HUMIRA [Suspect]
     Active Substance: ADALIMUMAB
     Indication: PSORIASIS
     Route: 058
     Dates: start: 20120305, end: 20120405

REACTIONS (3)
  - Gastric haemorrhage [Recovered/Resolved]
  - Vasculitis [Recovered/Resolved]
  - Stomach mass [Not Recovered/Not Resolved]

NARRATIVE: CASE EVENT DATE: 20120405
